FAERS Safety Report 4340017-9 (Version None)
Quarter: 2004Q2

REPORT INFORMATION
  Report Type: 
  Country: None (occurrence: None)
  Receive Date: 20040416
  Receipt Date: 20040405
  Transmission Date: 20050107
  Serious: Yes (Hospitalization)
  Sender: FDA-Public Use
  Company Number: FR-BRISTOL-MYERS SQUIBB COMPANY-12552964

PATIENT
  Sex: Male

DRUGS (4)
  1. MYCOSTATIN [Suspect]
     Dates: end: 20040405
  2. ZERIT [Interacting]
     Dates: end: 20040405
  3. EPIVIR [Concomitant]
     Dates: end: 20040405
  4. VIREAD [Concomitant]
     Dates: end: 20040405

REACTIONS (2)
  - BLOOD LACTIC ACID INCREASED [None]
  - DRUG INTERACTION [None]
